FAERS Safety Report 9888065 (Version 3)
Quarter: 2014Q3

REPORT INFORMATION
  Report Type: Report from Study
  Country: US (occurrence: US)
  Receive Date: 20140211
  Receipt Date: 20140827
  Transmission Date: 20150326
  Serious: Yes (Hospitalization, Other)
  Sender: FDA-Public Use
  Company Number: US-ALEXION-A201304898

PATIENT

DRUGS (2)
  1. DYRENIUM [Suspect]
     Active Substance: TRIAMTERENE
     Indication: DIURETIC THERAPY
     Route: 065
  2. SOLIRIS [Suspect]
     Active Substance: ECULIZUMAB
     Indication: HAEMOLYTIC URAEMIC SYNDROME
     Dosage: UNK
     Route: 042

REACTIONS (3)
  - Unevaluable event [Unknown]
  - Haemodialysis [Recovered/Resolved]
  - Adverse drug reaction [Unknown]
